FAERS Safety Report 14436676 (Version 1)
Quarter: 2018Q1

REPORT INFORMATION
  Report Type: Spontaneous
  Country: US (occurrence: US)
  Receive Date: 20180124
  Receipt Date: 20180124
  Transmission Date: 20180509
  Serious: Yes (Hospitalization)
  Sender: FDA-Public Use
  Company Number: None

PATIENT
  Age: 58 Year
  Sex: Male

DRUGS (1)
  1. SULFAMETHOXAZOLE/TRIMETHOPRIM [Suspect]
     Active Substance: SULFAMETHOXAZOLE\TRIMETHOPRIM
     Indication: INFECTION
     Dates: start: 20170630, end: 20170730

REACTIONS (3)
  - Drug reaction with eosinophilia and systemic symptoms [None]
  - Pulmonary alveolar haemorrhage [None]
  - Lupus-like syndrome [None]

NARRATIVE: CASE EVENT DATE: 20170809
